FAERS Safety Report 6161068-8 (Version None)
Quarter: 2009Q2

REPORT INFORMATION
  Report Type: 
  Country: None (occurrence: None)
  Receive Date: 20090420
  Receipt Date: 20090409
  Transmission Date: 20091009
  Serious: Yes (Death, Other)
  Sender: FDA-Public Use
  Company Number: US-PFIZER INC-2009181683

PATIENT
  Sex: Male

DRUGS (5)
  1. CAMPTOSAR [Suspect]
     Indication: BLADDER CANCER
     Dosage: 280 MG, EVERY OTHER WEEK
     Dates: start: 20081208, end: 20090304
  2. FLUOROURACIL [Concomitant]
     Dosage: 4500 MG
     Route: 042
     Dates: end: 20090304
  3. LEUCOVORIN CALCIUM [Concomitant]
     Dosage: 630 MG
     Dates: end: 20090304
  4. ALOXI [Concomitant]
     Dosage: 0.25 MG
  5. DECADRON [Concomitant]
     Dosage: 10 MG

REACTIONS (2)
  - HYPERKALAEMIA [None]
  - MYOCARDIAL INFARCTION [None]
